FAERS Safety Report 21310565 (Version 1)
Quarter: 2022Q3

REPORT INFORMATION
  Report Type: Spontaneous
  Country: US (occurrence: US)
  Receive Date: 20220909
  Receipt Date: 20220909
  Transmission Date: 20221026
  Serious: No
  Sender: FDA-Public Use
  Company Number: US-BRISTOL-MYERS SQUIBB COMPANY-2022-097460

PATIENT
  Age: 74 Year
  Sex: Male
  Weight: 65.77 kg

DRUGS (6)
  1. OPDUALAG [Suspect]
     Active Substance: NIVOLUMAB\RELATLIMAB-RMBW
     Indication: Malignant melanoma
     Dosage: DOSE : 1;     FREQ : EVERY 28 DAYS
     Route: 042
     Dates: start: 20220808
  2. NAPROXEN [Concomitant]
     Active Substance: NAPROXEN
     Indication: Pain
     Dosage: ^SOMETIMES TAKE 1/2^
     Route: 065
  3. B COMPLEX 50 [Concomitant]
     Indication: Product used for unknown indication
     Route: 065
  4. BETA GLUCAN [Concomitant]
     Active Substance: BETA GLUCAN
     Indication: Product used for unknown indication
     Route: 065
  5. VITAMIN D3 [Concomitant]
     Active Substance: CHOLECALCIFEROL
     Indication: Product used for unknown indication
     Dosage: 5000IU/125MCG (5)
     Route: 065
  6. CURCUMIN S [Concomitant]
     Indication: Product used for unknown indication
     Dosage: ALTERNATE EVERY OTHER DAY
     Route: 065

REACTIONS (3)
  - Pain [Unknown]
  - Chest pain [Unknown]
  - Palpitations [Unknown]
